FAERS Safety Report 7235571-3 (Version None)
Quarter: 2011Q1

REPORT INFORMATION
  Report Type: 
  Country: None (occurrence: None)
  Receive Date: 20110120
  Receipt Date: 20110112
  Transmission Date: 20110831
  Serious: Yes (Hospitalization)
  Sender: FDA-Public Use
  Company Number: PHHY2010FR73531

PATIENT
  Sex: Male

DRUGS (8)
  1. XYZAL [Concomitant]
  2. COZAAR [Concomitant]
  3. TADENAN [Concomitant]
  4. CARTEOL LP [Suspect]
     Indication: GLAUCOMA
     Dosage: UNK
     Route: 047
     Dates: start: 20100915, end: 20100920
  5. SYMBICORT [Concomitant]
  6. DEXERYL [Concomitant]
  7. ATARAX [Concomitant]
  8. SINGULAIR [Concomitant]

REACTIONS (10)
  - SKIN LESION [None]
  - PYREXIA [None]
  - ERYTHEMA [None]
  - EYELID OEDEMA [None]
  - EOSINOPHILIA [None]
  - LEUKOCYTOSIS [None]
  - GENERAL PHYSICAL HEALTH DETERIORATION [None]
  - DRUG RASH WITH EOSINOPHILIA AND SYSTEMIC SYMPTOMS [None]
  - ACUTE GENERALISED EXANTHEMATOUS PUSTULOSIS [None]
  - RASH [None]
